FAERS Safety Report 20989231 (Version 1)
Quarter: 2022Q2

REPORT INFORMATION
  Report Type: Other
  Country: US (occurrence: None)
  Receive Date: 20220621
  Receipt Date: 20220621
  Transmission Date: 20220721
  Serious: Yes (Hospitalization)
  Sender: FDA-Public Use
  Company Number: US-ROCHE-3116423

PATIENT
  Age: 65 Year
  Sex: Male
  Weight: 104.42 kg

DRUGS (7)
  1. OCREVUS [Suspect]
     Active Substance: OCRELIZUMAB
     Indication: Relapsing-remitting multiple sclerosis
     Dosage: 2ND DOSE ON 10/SEP/2021?300 MG DAY 1 AND DAY 15, THEN 600 MG EVERY 6 MONTHS
     Route: 042
     Dates: start: 20210826
  2. AMPYRA [Concomitant]
     Active Substance: DALFAMPRIDINE
  3. METOPROLOL [Concomitant]
     Active Substance: METOPROLOL
  4. TAMBOCOR [Concomitant]
     Active Substance: FLECAINIDE ACETATE
  5. FUROSEMIDE [Concomitant]
     Active Substance: FUROSEMIDE
  6. BACLOFEN [Concomitant]
     Active Substance: BACLOFEN
  7. LIPITOR [Concomitant]
     Active Substance: ATORVASTATIN CALCIUM

REACTIONS (3)
  - Urosepsis [Recovered/Resolved]
  - Gastric haemorrhage [Recovered/Resolved]
  - Constipation [Not Recovered/Not Resolved]

NARRATIVE: CASE EVENT DATE: 20220211
